FAERS Safety Report 11614983 (Version 2)
Quarter: 2015Q4

REPORT INFORMATION
  Report Type: Spontaneous
  Country: US (occurrence: US)
  Receive Date: 20151009
  Receipt Date: 20151013
  Transmission Date: 20160304
  Serious: No
  Sender: FDA-Public Use
  Company Number: US-JNJFOC-20151003241

PATIENT
  Age: 29 Year
  Sex: Male
  Weight: 74.84 kg

DRUGS (3)
  1. VICODIN [Concomitant]
     Active Substance: ACETAMINOPHEN\HYDROCODONE BITARTRATE
     Indication: SURGERY
     Dosage: 1-2 PER DAY
     Route: 048
  2. DURAGESIC [Suspect]
     Active Substance: FENTANYL
     Indication: SURGERY
     Route: 062
     Dates: start: 201509
  3. DURAGESIC [Suspect]
     Active Substance: FENTANYL
     Indication: SURGERY
     Route: 062
     Dates: start: 201509, end: 2015

REACTIONS (4)
  - Wrong technique in product usage process [Unknown]
  - Product quality issue [Unknown]
  - Drug ineffective [Unknown]
  - Product quality issue [Unknown]

NARRATIVE: CASE EVENT DATE: 201409
